FAERS Safety Report 22647919 (Version 1)
Quarter: 2023Q2

REPORT INFORMATION
  Report Type: Spontaneous
  Country: US (occurrence: US)
  Receive Date: 20230628
  Receipt Date: 20230628
  Transmission Date: 20230722
  Serious: No
  Sender: FDA-Public Use
  Company Number: US-BIOGEN-2023BI01212762

PATIENT
  Sex: Female

DRUGS (1)
  1. VUMERITY [Suspect]
     Active Substance: DIROXIMEL FUMARATE
     Indication: Multiple sclerosis
     Route: 050
     Dates: start: 20221013

REACTIONS (5)
  - Rash macular [Unknown]
  - Gait inability [Unknown]
  - Gastric disorder [Unknown]
  - Hypersensitivity [Unknown]
  - Hot flush [Unknown]
